FAERS Safety Report 7034261-X (Version None)
Quarter: 2010Q4

REPORT INFORMATION
  Report Type: 
  Country: None (occurrence: None)
  Receive Date: 20101008
  Receipt Date: 20100924
  Transmission Date: 20110411
  Serious: Yes (Hospitalization)
  Sender: FDA-Public Use
  Company Number: DE-ELI_LILLY_AND_COMPANY-DE201006002284

PATIENT
  Age: 76 Year
  Sex: Female

DRUGS (29)
  1. ZYPREXA [Suspect]
     Indication: DEPRESSION
     Dosage: 10 MG, UNK
     Route: 048
     Dates: end: 20090710
  2. ZYPREXA [Suspect]
     Dosage: 5 MG, UNK
     Route: 048
     Dates: start: 20090711, end: 20090714
  3. CYMBALTA [Suspect]
     Indication: DEPRESSION
     Dosage: 30-60MG
     Route: 048
     Dates: start: 20080701, end: 20081020
  4. CYMBALTA [Suspect]
     Dosage: 90 MG, UNK
     Route: 048
     Dates: start: 20081021, end: 20090709
  5. CYMBALTA [Suspect]
     Dosage: 60 MG, UNK
     Route: 048
     Dates: start: 20090710
  6. SOLVEX [Concomitant]
     Indication: DEPRESSED MOOD
     Dosage: 8 MG, UNK
     Route: 048
     Dates: end: 20090715
  7. LYRICA [Concomitant]
     Indication: ANXIETY
     Dosage: 25 MG, UNK
     Route: 048
     Dates: start: 20090710, end: 20090710
  8. LYRICA [Concomitant]
     Dosage: 50 MG, UNK
     Route: 048
     Dates: start: 20090711, end: 20090711
  9. LYRICA [Concomitant]
     Dosage: 75 MG, UNK
     Route: 048
     Dates: start: 20090713, end: 20090714
  10. LYRICA [Concomitant]
     Dosage: 100 MG, UNK
     Route: 048
     Dates: start: 20090714, end: 20090715
  11. LYRICA [Concomitant]
     Dosage: 50 MG, UNK
     Route: 048
     Dates: start: 20090716, end: 20090716
  12. LYRICA [Concomitant]
     Dosage: 25 MG, UNK
     Route: 048
     Dates: start: 20090717, end: 20090719
  13. LYRICA [Concomitant]
     Dosage: 50 MG, UNK
     Route: 048
     Dates: start: 20090720, end: 20090723
  14. LYRICA [Concomitant]
     Dosage: 100 MG, UNK
     Route: 048
     Dates: start: 20090724
  15. DOMINAL [Concomitant]
     Indication: SLEEP DISORDER
     Dosage: 40 MG, UNK
     Route: 048
     Dates: start: 20090709, end: 20090709
  16. DOMINAL [Concomitant]
     Dosage: 80 MG, UNK
     Route: 048
     Dates: start: 20090710
  17. ACTRAPID                           /00030501/ [Concomitant]
     Indication: HYPERGLYCAEMIA
     Dosage: 18 IU, UNK
     Dates: start: 20090709
  18. LEVOTHYROXINE SODIUM [Concomitant]
     Indication: DEPRESSION
     Dosage: 50 UG, UNK
     Route: 048
  19. KALINOR [Concomitant]
     Indication: HYPOKALAEMIA
     Dosage: 600 MG, UNK
     Route: 048
     Dates: end: 20090713
  20. KALINOR [Concomitant]
     Dosage: 1200 MG, UNK
     Route: 048
     Dates: start: 20090714, end: 20090729
  21. ASPIRIN [Concomitant]
     Indication: CORONARY ARTERY DISEASE
     Dosage: 100 MG, UNK
     Route: 048
     Dates: end: 20090715
  22. SIMVASTATIN [Concomitant]
     Indication: HYPERLIPIDAEMIA
     Dosage: 10 MG, UNK
     Route: 048
     Dates: end: 20090716
  23. XIPAMID [Concomitant]
     Indication: OEDEMA
     Dosage: 10 MG, UNK
     Route: 048
     Dates: end: 20090714
  24. NEXIUM [Concomitant]
     Indication: GASTRITIS
     Dosage: 40 MG, UNK
     Route: 048
     Dates: start: 20080501, end: 20081001
  25. NEXIUM [Concomitant]
     Dosage: 20 MG, UNK
     Route: 048
     Dates: start: 20081001
  26. FUROSEMIDE [Concomitant]
     Indication: OEDEMA
     Dosage: 40 MG, UNKNOWN
     Route: 048
     Dates: start: 20080701, end: 20080801
  27. FUROSEMIDE [Concomitant]
     Dosage: 20 MG, UNK
     Route: 048
     Dates: start: 20080801
  28. AMIODARONE HCL [Concomitant]
     Dosage: 200 MG, UNK
     Route: 048
     Dates: start: 20080701, end: 20090715
  29. AMIODARONE HCL [Concomitant]
     Dosage: 100 MG, UNK
     Route: 048
     Dates: start: 20090716

REACTIONS (8)
  - DEPRESSION [None]
  - DIZZINESS [None]
  - DRUG INTERACTION [None]
  - ELECTROCARDIOGRAM QT PROLONGED [None]
  - FALL [None]
  - HYPOKALAEMIA [None]
  - HYPONATRAEMIA [None]
  - OFF LABEL USE [None]
